FAERS Safety Report 8961023 (Version 1)
Quarter: 2012Q4

REPORT INFORMATION
  Report Type: 
  Country: US (occurrence: US)
  Receive Date: 20121212
  Receipt Date: 20121212
  Transmission Date: 20130627
  Serious: No
  Sender: FDA-Public Use
  Company Number: US-ASTRAZENECA-2012SE89879

PATIENT
  Age: 40 Year
  Sex: Male
  Weight: 113.4 kg

DRUGS (6)
  1. SEROQUEL [Suspect]
     Indication: BIPOLAR DISORDER
     Route: 048
  2. SEROQUEL [Suspect]
     Indication: BIPOLAR DISORDER
     Route: 048
     Dates: start: 2006
  3. SEROQUEL [Suspect]
     Indication: BIPOLAR DISORDER
     Route: 048
  4. LISINOPRIL [Suspect]
     Indication: BLOOD PRESSURE
     Route: 048
  5. KLONOPIN [Concomitant]
     Indication: BIPOLAR DISORDER
     Route: 048
  6. TONAZAPAM [Concomitant]

REACTIONS (12)
  - Malaise [Unknown]
  - Insomnia [Unknown]
  - Thinking abnormal [Unknown]
  - Agitation [Unknown]
  - Activities of daily living impaired [Unknown]
  - Mania [Unknown]
  - Disturbance in attention [Unknown]
  - Social avoidant behaviour [Unknown]
  - Depression [Unknown]
  - Drug withdrawal syndrome [Unknown]
  - Drug dispensing error [Unknown]
  - Intentional drug misuse [Unknown]
